FAERS Safety Report 4349739-7 (Version None)
Quarter: 2004Q2

REPORT INFORMATION
  Report Type: 
  Country: None (occurrence: None)
  Receive Date: 20040426
  Receipt Date: 20040413
  Transmission Date: 20050107
  Serious: Yes (Hospitalization, Other)
  Sender: FDA-Public Use
  Company Number: 2004025317

PATIENT
  Age: 25 Year
  Sex: Female
  Weight: 63.5036 kg

DRUGS (3)
  1. ANTIVERT [Suspect]
     Indication: VERTIGO
     Dosage: 100 MG (QID), ORAL
     Route: 048
     Dates: start: 20040406, end: 20040407
  2. LORAZEPAM [Suspect]
     Indication: ILL-DEFINED DISORDER
     Dates: start: 20040409, end: 20040401
  3. HALOPERIDOL [Suspect]
     Indication: HALLUCINATION
     Dates: start: 20040401, end: 20040401

REACTIONS (12)
  - AGGRESSION [None]
  - AMNESIA [None]
  - ANXIETY [None]
  - CATATONIA [None]
  - COMA [None]
  - CONFUSIONAL STATE [None]
  - CONVULSION [None]
  - DELIRIUM [None]
  - DELUSION [None]
  - DRUG INEFFECTIVE [None]
  - HALLUCINATION [None]
  - RESTLESSNESS [None]
